FAERS Safety Report 6909500-3 (Version None)
Quarter: 2010Q3

REPORT INFORMATION
  Report Type: 
  Country: None (occurrence: None)
  Receive Date: 20100805
  Receipt Date: 20100726
  Transmission Date: 20110219
  Serious: Yes (Other)
  Sender: FDA-Public Use
  Company Number: BR-WATSON-2010-10258

PATIENT
  Age: 14 Year
  Sex: Male

DRUGS (4)
  1. SULFAMETHOXAZOLE AND TRIMETHOPRIM [Suspect]
     Indication: PARACOCCIDIOIDES INFECTION
     Dosage: 8 MG/KG, TID
  2. AMPHOTERICIN B [Suspect]
     Indication: PARACOCCIDIOIDES INFECTION
     Dosage: UNK
  3. ITRACONAZOLE [Suspect]
     Indication: PARACOCCIDIOIDES INFECTION
     Dosage: 200 MG, DAILY
  4. SULFADIAZINE [Suspect]
     Indication: PARACOCCIDIOIDES INFECTION
     Dosage: 4 MG, DAILY

REACTIONS (2)
  - IMMUNE RECONSTITUTION SYNDROME [None]
  - PARADOXICAL DRUG REACTION [None]
